FAERS Safety Report 19596988 (Version 1)
Quarter: 2021Q3

REPORT INFORMATION
  Report Type: Report from Study
  Country: MX (occurrence: MX)
  Receive Date: 20210722
  Receipt Date: 20210722
  Transmission Date: 20211014
  Serious: Yes (Other)
  Sender: FDA-Public Use
  Company Number: MX-ASTRAZENECA-2021A616302

PATIENT
  Sex: Female
  Weight: 56.8 kg

DRUGS (6)
  1. XIGDUO XR [Suspect]
     Active Substance: DAPAGLIFLOZIN PROPANEDIOL\METFORMIN HYDROCHLORIDE
     Indication: DIABETES MELLITUS
     Dosage: 10/1000MG
     Route: 048
  2. SUNITINIB [Concomitant]
     Active Substance: SUNITINIB
     Route: 065
     Dates: start: 20210608
  3. KETOSTERIL [Concomitant]
     Active Substance: AMINO ACIDS, SOURCE UNSPECIFIED
     Dosage: CURRENTLY 6 A DAY, PREVIOUSLY 4 A DAY
     Route: 065
     Dates: start: 20210406
  4. PFIZER?BIONTECH COVID?19 VACCINE [Suspect]
     Active Substance: TOZINAMERAN
     Route: 065
  5. SUNITINIB [Suspect]
     Active Substance: SUNITINIB
     Route: 065
  6. RIVAROXABAN [Concomitant]
     Active Substance: RIVAROXABAN
     Route: 065

REACTIONS (18)
  - Lung neoplasm [Unknown]
  - Decreased activity [Unknown]
  - Gingival discomfort [Unknown]
  - Nail disorder [Unknown]
  - Onychoclasis [Unknown]
  - Cough [Unknown]
  - Pruritus [Unknown]
  - Blood creatinine increased [Unknown]
  - Oral discomfort [Unknown]
  - Off label use [Unknown]
  - Throat irritation [Unknown]
  - Tongue discomfort [Unknown]
  - Nail discolouration [Unknown]
  - Hypoaesthesia [Unknown]
  - Vision blurred [Unknown]
  - Alopecia [Unknown]
  - Inflammation [Unknown]
  - Influenza [Unknown]
